FAERS Safety Report 6335126-9 (Version None)
Quarter: 2009Q3

REPORT INFORMATION
  Report Type: 
  Country: None (occurrence: None)
  Receive Date: 20090828
  Receipt Date: 20090828
  Transmission Date: 20100115
  Serious: Yes (Hospitalization)
  Sender: FDA-Public Use
  Company Number: None

PATIENT
  Age: 75 Year
  Sex: Female
  Weight: 78.4723 kg

DRUGS (1)
  1. CIPRO [Suspect]
     Indication: CELLULITIS
     Dosage: 500 MG 1 TAB. 2 T DAILY
     Dates: start: 20090416, end: 20090419

REACTIONS (6)
  - ABASIA [None]
  - DYSSTASIA [None]
  - MUSCLE DISORDER [None]
  - MYALGIA [None]
  - TENDON DISORDER [None]
  - TENDON PAIN [None]
